FAERS Safety Report 24354565 (Version 1)
Quarter: 2024Q3

REPORT INFORMATION
  Report Type: Spontaneous
  Country: IT (occurrence: IT)
  Receive Date: 20240923
  Receipt Date: 20240923
  Transmission Date: 20241016
  Serious: Yes (Other)
  Sender: BAYER
  Company Number: None

PATIENT
  Age: 54 Year
  Sex: Male
  Weight: 69 kg

DRUGS (1)
  1. CIPROFLOXACIN [Suspect]
     Active Substance: CIPROFLOXACIN
     Indication: Pyrexia
     Dosage: HE DRUG IS ADMINISTERED INTRAVENOUSLY AT A STRENGTH OF 400 MG TWICE A DAY
     Route: 042
     Dates: start: 20240823, end: 20240831

REACTIONS (4)
  - Superficial vein thrombosis [Recovering/Resolving]
  - Brachiocephalic vein thrombosis [Recovering/Resolving]
  - Pain in extremity [Recovering/Resolving]
  - Peripheral swelling [Recovering/Resolving]

NARRATIVE: CASE EVENT DATE: 20240828
